FAERS Safety Report 19366884 (Version 1)
Quarter: 2021Q2

REPORT INFORMATION
  Report Type: Spontaneous
  Country: US (occurrence: US)
  Receive Date: 20210602
  Receipt Date: 20210602
  Transmission Date: 20210717
  Serious: No
  Sender: FDA-Public Use
  Company Number: US-BAYER-2021-149709

PATIENT
  Sex: Male

DRUGS (2)
  1. COVID?19 VACCINE MRNA [Concomitant]
  2. KOGENATE FS [Suspect]
     Active Substance: ANTIHEMOPHILIC FACTOR, HUMAN RECOMBINANT
     Indication: FACTOR VIII DEFICIENCY
     Dosage: 4000 IU, QOD
     Route: 042
     Dates: start: 202105

REACTIONS (1)
  - Pyrexia [None]
